FAERS Safety Report 9228072 (Version 9)
Quarter: 2013Q3

REPORT INFORMATION
  Report Type: Spontaneous
  Country: US (occurrence: US)
  Receive Date: 20130412
  Receipt Date: 20130917
  Transmission Date: 20140515
  Serious: Yes (Hospitalization, Congenital Anomaly, Other)
  Sender: FDA-Public Use
  Company Number: US-JNJFOC-20130402916

PATIENT
  Age: 0 None
  Sex: Female
  Weight: 2.64 kg

DRUGS (7)
  1. ZYTIGA [Suspect]
     Indication: FOETAL EXPOSURE DURING PREGNANCY
     Route: 064
     Dates: start: 201207
  2. TYLENOL [Suspect]
     Route: 064
  3. TYLENOL [Suspect]
     Indication: FOETAL EXPOSURE DURING PREGNANCY
     Dosage: APPROXIMATELY 1000 MG BID
     Route: 064
  4. TDAP VACCINE [Suspect]
     Indication: FOETAL EXPOSURE DURING PREGNANCY
     Route: 064
     Dates: start: 20120924
  5. INFLUENZA [Suspect]
     Indication: FOETAL EXPOSURE DURING PREGNANCY
     Route: 064
     Dates: start: 20120924
  6. OMEGA 3 [Concomitant]
     Indication: FOETAL EXPOSURE DURING PREGNANCY
     Route: 064
  7. DOCOSAHEXAENOIC ACID [Concomitant]
     Indication: FOETAL EXPOSURE DURING PREGNANCY
     Route: 064

REACTIONS (8)
  - Cerebral ventricle dilatation [Recovered/Resolved]
  - Choroid plexus papilloma [Recovered/Resolved]
  - Cardiac murmur [Recovered/Resolved]
  - Premature baby [Not Recovered/Not Resolved]
  - Croup infectious [Unknown]
  - Tympanic membrane perforation [Unknown]
  - Laryngeal stenosis [Not Recovered/Not Resolved]
  - Ear infection [Unknown]
